FAERS Safety Report 5936090-4 (Version None)
Quarter: 2008Q4

REPORT INFORMATION
  Report Type: 
  Country: None (occurrence: None)
  Receive Date: 20081030
  Receipt Date: 20081022
  Transmission Date: 20090506
  Serious: Yes (Hospitalization, Other)
  Sender: FDA-Public Use
  Company Number: PHHY2008BR25839

PATIENT
  Age: 92 Year
  Sex: Male

DRUGS (1)
  1. FORASEQ [Suspect]
     Dosage: UNK
     Dates: start: 20050101

REACTIONS (7)
  - AGITATION [None]
  - BLADDER CATHETERISATION [None]
  - DYSPNOEA [None]
  - DYSURIA [None]
  - HYPERTENSION [None]
  - PROSTATIC DISORDER [None]
  - URINARY RETENTION [None]
